FAERS Safety Report 13814920 (Version 2)
Quarter: 2017Q3

REPORT INFORMATION
  Report Type: Spontaneous
  Country: US (occurrence: US)
  Receive Date: 20170731
  Receipt Date: 20170811
  Transmission Date: 20171127
  Serious: No
  Sender: FDA-Public Use
  Company Number: US-BAYER-2017-145518

PATIENT
  Sex: Male

DRUGS (2)
  1. STOOL SOFTENER (DOCUSATE) [Concomitant]
     Active Substance: DOCUSATE
     Dosage: 2 DF, QD
  2. MIRALAX [Suspect]
     Active Substance: POLYETHYLENE GLYCOL 3350
     Indication: GASTROINTESTINAL DISORDER
     Dosage: 1 DF, QD
     Route: 048

REACTIONS (5)
  - Pollakiuria [Unknown]
  - Gastrointestinal motility disorder [Unknown]
  - Drug ineffective [Unknown]
  - Incorrect drug administration duration [Unknown]
  - Product use issue [Unknown]
